FAERS Safety Report 7674006-3 (Version None)
Quarter: 2011Q3

REPORT INFORMATION
  Report Type: 
  Country: None (occurrence: None)
  Receive Date: 20110810
  Receipt Date: 20110414
  Transmission Date: 20111222
  Serious: No
  Sender: FDA-Public Use
  Company Number: US-GLAXOSMITHKLINE-A0923820A

PATIENT
  Age: 71 Year
  Sex: Female

DRUGS (3)
  1. IMITREX [Concomitant]
  2. PAXIL CR [Suspect]
     Indication: ANXIETY
     Dosage: 37.5MG TWICE PER DAY
     Route: 048
     Dates: start: 20071201
  3. XANAX [Concomitant]

REACTIONS (4)
  - ACCIDENT [None]
  - BLADDER INJURY [None]
  - URINARY INCONTINENCE [None]
  - URINARY RETENTION [None]
